FAERS Safety Report 6184305-2 (Version None)
Quarter: 2009Q2

REPORT INFORMATION
  Report Type: 
  Country: None (occurrence: None)
  Receive Date: 20090508
  Receipt Date: 20090501
  Transmission Date: 20091009
  Serious: Yes (Other)
  Sender: FDA-Public Use
  Company Number: US-AVENTIS-200913815US

PATIENT
  Sex: Female

DRUGS (9)
  1. LANTUS [Suspect]
     Route: 058
     Dates: start: 20011101
  2. OPTICLIK (INSULIN INJECTION PEN) [Suspect]
     Dates: start: 20050101
  3. COUMADIN [Concomitant]
  4. PANCREASE                          /00150201/ [Concomitant]
     Dosage: DOSE: 6 TABLETS
  5. NOVOLOG [Concomitant]
     Dosage: DOSE: PER SLIDING SCALE
  6. FAMOTIDINE [Concomitant]
  7. ACYCLOVIR [Concomitant]
     Dosage: DOSE: 400 MG 4 TABLETS PER DAY
  8. PREDNISOLONE [Concomitant]
     Dosage: DOSE: 1 DROP 4 TIMES PER DAY TO LEFT EYE
     Route: 047
  9. NORCO [Concomitant]
     Dosage: DOSE: 2 TABS EVERY 4 HOURS AS NEEDED

REACTIONS (3)
  - BREAST CANCER [None]
  - INTRACARDIAC THROMBUS [None]
  - LUNG NEOPLASM MALIGNANT [None]
